FAERS Safety Report 5054847-1 (Version None)
Quarter: 2006Q3

REPORT INFORMATION
  Report Type: 
  Country: None (occurrence: None)
  Receive Date: 20060717
  Receipt Date: 20060703
  Transmission Date: 20061208
  Serious: Yes (Hospitalization, Other)
  Sender: FDA-Public Use
  Company Number: 2006081250

PATIENT
  Age: 53 Year
  Sex: Male
  Weight: 54.4316 kg

DRUGS (1)
  1. LYRICA [Suspect]
     Indication: CONVULSION
     Dosage: 300 MG (150 MG, 2 IN 1 D),ORAL
     Route: 048
     Dates: start: 20060101, end: 20060624

REACTIONS (7)
  - CHILLS [None]
  - DIARRHOEA [None]
  - DRUG WITHDRAWAL SYNDROME [None]
  - DRY MOUTH [None]
  - DYSPHONIA [None]
  - INCONTINENCE [None]
  - MUSCLE SPASMS [None]
